FAERS Safety Report 9098007 (Version 1)
Quarter: 2013Q1

REPORT INFORMATION
  Report Type: Report from Study
  Country: US (occurrence: US)
  Receive Date: 20130212
  Receipt Date: 20130212
  Transmission Date: 20140127
  Serious: Yes (Hospitalization, Other)
  Sender: FDA-Public Use
  Company Number: US-ROCHE-1187001

PATIENT
  Age: 70 Year
  Sex: Male
  Weight: 92 kg

DRUGS (4)
  1. BEVACIZUMAB [Suspect]
     Indication: NEUROENDOCRINE CARCINOMA
     Route: 042
     Dates: start: 20120906
  2. EVEROLIMUS [Suspect]
     Indication: NEUROENDOCRINE CARCINOMA
     Route: 048
     Dates: start: 20120906
  3. OCTREOTIDE ACETATE [Suspect]
     Indication: NEUROENDOCRINE CARCINOMA
     Dosage: LAR 20 MG ON DAY 1
     Route: 030
     Dates: start: 20120906
  4. LOVENOX [Concomitant]
     Route: 065
     Dates: start: 20121128

REACTIONS (5)
  - Lung infection [Recovering/Resolving]
  - Encephalopathy [Recovering/Resolving]
  - International normalised ratio increased [Recovering/Resolving]
  - Blood creatinine increased [Recovering/Resolving]
  - Embolism [Recovering/Resolving]
